FAERS Safety Report 21094377 (Version 3)
Quarter: 2022Q3

REPORT INFORMATION
  Report Type: Spontaneous
  Country: CO (occurrence: CO)
  Receive Date: 20220718
  Receipt Date: 20220816
  Transmission Date: 20221026
  Serious: Yes (Other)
  Sender: FDA-Public Use
  Company Number: CO-PFIZER INC-PV202200020235

PATIENT
  Age: 39 Year
  Sex: Female

DRUGS (3)
  1. XELJANZ [Suspect]
     Active Substance: TOFACITINIB CITRATE
     Indication: Colitis ulcerative
     Dosage: 5 MG
     Route: 048
     Dates: start: 202205, end: 202206
  2. XELJANZ [Suspect]
     Active Substance: TOFACITINIB CITRATE
     Dosage: 10 MG, DAILY
     Route: 048
     Dates: start: 202206
  3. XELJANZ [Suspect]
     Active Substance: TOFACITINIB CITRATE
     Dosage: 10 MG, UNSPECIFIED FREQUENCY
     Route: 048

REACTIONS (9)
  - Colitis ulcerative [Unknown]
  - Breast abscess [Not Recovered/Not Resolved]
  - Breast mass [Not Recovered/Not Resolved]
  - Benign nipple neoplasm [Not Recovered/Not Resolved]
  - Nipple pain [Unknown]
  - Mastitis [Unknown]
  - Eye infection [Unknown]
  - Blepharitis [Unknown]
  - Mydriasis [Unknown]

NARRATIVE: CASE EVENT DATE: 20220601
